FAERS Safety Report 9929317 (Version 1)
Quarter: 2014Q1

REPORT INFORMATION
  Report Type: Spontaneous
  Country: US (occurrence: US)
  Receive Date: 20140227
  Receipt Date: 20140227
  Transmission Date: 20141002
  Serious: No
  Sender: FDA-Public Use
  Company Number: US-BAYER-2014-031370

PATIENT
  Age: 54 Year
  Sex: 0

DRUGS (1)
  1. GADAVIST [Suspect]
     Dosage: UNK
     Dates: start: 20130313, end: 20130313

REACTIONS (3)
  - Pruritus [None]
  - Nasal congestion [None]
  - Dyspnoea [None]
